FAERS Safety Report 6754389-9 (Version None)
Quarter: 2010Q2

REPORT INFORMATION
  Report Type: 
  Country: None (occurrence: None)
  Receive Date: 20100601
  Receipt Date: 20100517
  Transmission Date: 20101027
  Serious: Yes (Other)
  Sender: FDA-Public Use
  Company Number: 2010002055

PATIENT
  Age: 75 Year
  Sex: Female

DRUGS (7)
  1. ERLOTINIB (ERLOTINIB) (TABLET) (ERLOTINIB) [Suspect]
     Indication: LUNG ADENOCARCINOMA
     Dosage: (150 MG, QD), ORAL
     Route: 048
     Dates: start: 20090918, end: 20100128
  2. EPINASTINE HYDROCHLORIDE (EPINASTINE HYDROCHLORIDE) [Concomitant]
  3. FERROMIA (FERROUS CITRATE) [Concomitant]
  4. DOGMATYL (SULPIRIDE) [Concomitant]
  5. POSTERISAN (POSTERISAN) [Concomitant]
  6. ZOMETA [Concomitant]
  7. DIAZEPAM [Concomitant]

REACTIONS (6)
  - CHEST PAIN [None]
  - MALIGNANT NEOPLASM PROGRESSION [None]
  - MENTALLY LATE DEVELOPER [None]
  - NON-SMALL CELL LUNG CANCER METASTATIC [None]
  - RADIATION INJURY [None]
  - SCAB [None]
